FAERS Safety Report 6153697-2 (Version None)
Quarter: 2009Q2

REPORT INFORMATION
  Report Type: 
  Country: None (occurrence: None)
  Receive Date: 20090410
  Receipt Date: 20090405
  Transmission Date: 20091009
  Serious: Yes (Hospitalization)
  Sender: FDA-Public Use
  Company Number: CHPA2009US08669

PATIENT
  Age: 43 Year
  Sex: Female

DRUGS (7)
  1. NICOTINE [Suspect]
     Indication: SMOKING CESSATION THERAPY
     Dosage: 21 MG, QD, TRANSDERMAL
     Route: 062
     Dates: start: 20090323, end: 20090404
  2. DILANTIN /AUS/ (PHENYTOIN SODIUM) [Concomitant]
  3. HYDROXYZINE [Concomitant]
  4. CALCIUM (CALCIUM) [Concomitant]
  5. FOLIC ACID [Concomitant]
  6. TOPAMAX [Concomitant]
  7. FLEXERIL [Concomitant]

REACTIONS (1)
  - CONVULSION [None]
